FAERS Safety Report 19066168 (Version 4)
Quarter: 2021Q2

REPORT INFORMATION
  Report Type: Report from Study
  Country: US (occurrence: US)
  Receive Date: 20210327
  Receipt Date: 20210620
  Transmission Date: 20210717
  Serious: Yes (Other)
  Sender: FDA-Public Use
  Company Number: NVSC2021US060793

PATIENT
  Age: 59 Year
  Sex: Female

DRUGS (4)
  1. ENTRESTO [Suspect]
     Active Substance: SACUBITRIL\VALSARTAN
     Indication: SWELLING FACE
  2. ENTRESTO [Suspect]
     Active Substance: SACUBITRIL\VALSARTAN
     Indication: LOCALISED OEDEMA
  3. ENTRESTO [Suspect]
     Active Substance: SACUBITRIL\VALSARTAN
     Indication: PERIPHERAL SWELLING
     Dosage: 100 MG, BID (49/51 MG)
     Route: 048
     Dates: start: 20210226
  4. REMICADE [Concomitant]
     Active Substance: INFLIXIMAB
     Indication: HAEMORRHOIDAL HAEMORRHAGE
     Dosage: UNK
     Route: 065
     Dates: start: 202101

REACTIONS (16)
  - Crohn^s disease [Unknown]
  - Weight increased [Unknown]
  - Hypoaesthesia [Unknown]
  - Hypotension [Not Recovered/Not Resolved]
  - Bradycardia [Not Recovered/Not Resolved]
  - Condition aggravated [Recovering/Resolving]
  - Joint injury [Unknown]
  - Fall [Unknown]
  - Product use in unapproved indication [Unknown]
  - Peripheral swelling [Recovering/Resolving]
  - Therapeutic response unexpected [Unknown]
  - Initial insomnia [Not Recovered/Not Resolved]
  - Haematoma [Unknown]
  - Fatigue [Not Recovered/Not Resolved]
  - Autoimmune disorder [Unknown]
  - Asthenia [Not Recovered/Not Resolved]

NARRATIVE: CASE EVENT DATE: 2020
